FAERS Safety Report 4446632-6 (Version None)
Quarter: 2004Q3

REPORT INFORMATION
  Report Type: 
  Country: None (occurrence: None)
  Receive Date: 20040910
  Receipt Date: 20040902
  Transmission Date: 20050211
  Serious: Yes (Hospitalization)
  Sender: FDA-Public Use
  Company Number: US-MERCK-0409USA00236

PATIENT
  Age: 82 Year
  Sex: Male

DRUGS (4)
  1. [THERAPY UNSPECIFIED] [Concomitant]
     Route: 065
  2. ASPIRIN [Concomitant]
     Route: 065
  3. AMARYL [Concomitant]
     Route: 065
  4. VIOXX [Suspect]
     Indication: ARTHRITIS
     Route: 048

REACTIONS (2)
  - ABDOMINAL PAIN UPPER [None]
  - MYOCARDIAL INFARCTION [None]
